FAERS Safety Report 8553218-0 (Version None)
Quarter: 2012Q3

REPORT INFORMATION
  Report Type: 
  Country: None (occurrence: None)
  Receive Date: 20120731
  Receipt Date: 20120723
  Transmission Date: 20120928
  Serious: Yes (Other)
  Sender: FDA-Public Use
  Company Number: CN-BRISTOL-MYERS SQUIBB COMPANY-16761355

PATIENT
  Age: 39 Year
  Sex: Male

DRUGS (10)
  1. GLYCYRRHIZINIC ACID [Concomitant]
  2. PHOSPHATIDYLCHOLINE [Concomitant]
  3. BICYCLOL [Concomitant]
  4. GLUTATHIONE [Concomitant]
  5. THYMOPENTIN [Concomitant]
  6. COENZYME Q10 [Concomitant]
  7. ALPROSTADIL [Concomitant]
  8. ENTECAVIR [Suspect]
     Indication: HEPATITIS B
  9. DIAMMONIUM GLYCYRRHIZINATE [Concomitant]
  10. ACARBOSE [Concomitant]

REACTIONS (1)
  - TOXIC EPIDERMAL NECROLYSIS [None]
